FAERS Safety Report 7587594-2 (Version None)
Quarter: 2011Q3

REPORT INFORMATION
  Report Type: 
  Country: None (occurrence: None)
  Receive Date: 20110704
  Receipt Date: 20110622
  Transmission Date: 20111222
  Serious: Yes (Other)
  Sender: FDA-Public Use
  Company Number: PHHY2010US88182

PATIENT
  Sex: Female
  Weight: 82.54 kg

DRUGS (2)
  1. GLEEVEC [Suspect]
     Indication: BONE NEOPLASM MALIGNANT
     Dosage: 400 MG, QD
     Route: 048
     Dates: start: 20100811
  2. GLEEVEC [Suspect]
     Indication: CHONDROBLASTOMA
     Dosage: 400 MG, QD
     Route: 048
     Dates: start: 20110301

REACTIONS (7)
  - GASTRIC DISORDER [None]
  - DIARRHOEA [None]
  - FLUID RETENTION [None]
  - NEOPLASM MALIGNANT [None]
  - JOINT SWELLING [None]
  - PULMONARY MASS [None]
  - DISEASE PROGRESSION [None]
